FAERS Safety Report 8726828 (Version 2)
Quarter: 2012Q4

REPORT INFORMATION
  Report Type: 
  Country: US (occurrence: US)
  Receive Date: 20120816
  Receipt Date: 20120830
  Transmission Date: 20130627
  Serious: Yes (Other)
  Sender: FDA-Public Use
  Company Number: US-PFIZER INC-2012198238

PATIENT
  Age: 6 None
  Sex: Female
  Weight: 70 kg

DRUGS (1)
  1. RAPAMUNE [Suspect]
     Indication: CHRONIC GRAFT VERSUS HOST DISEASE
     Dosage: 1 mg, 2x/day
     Route: 048
     Dates: start: 200806

REACTIONS (5)
  - Acute myocardial infarction [Recovered/Resolved]
  - Atrioventricular block [Unknown]
  - Blood pressure increased [Unknown]
  - Blood cholesterol increased [Unknown]
  - Off label use [Unknown]
